FAERS Safety Report 6216277-6 (Version None)
Quarter: 2009Q2

REPORT INFORMATION
  Report Type: 
  Country: None (occurrence: None)
  Receive Date: 20090605
  Receipt Date: 20090603
  Transmission Date: 20091009
  Serious: Yes (Hospitalization)
  Sender: FDA-Public Use
  Company Number: B0577082A

PATIENT
  Sex: Male

DRUGS (7)
  1. ZOVIRAX [Suspect]
     Route: 042
     Dates: start: 20071101, end: 20071101
  2. ZYLORIC [Concomitant]
     Route: 065
  3. DEPAKENE [Concomitant]
     Route: 065
  4. NEURONTIN [Concomitant]
     Route: 065
  5. COAPROVEL [Concomitant]
     Route: 065
  6. JOSIR [Concomitant]
     Route: 065
  7. COLCHICINE [Concomitant]
     Route: 065

REACTIONS (5)
  - BLOOD PRESSURE DECREASED [None]
  - GENERALISED OEDEMA [None]
  - MOUTH ULCERATION [None]
  - NEPHROTIC SYNDROME [None]
  - RENAL FAILURE ACUTE [None]
